FAERS Safety Report 8375033-3 (Version None)
Quarter: 2012Q2

REPORT INFORMATION
  Report Type: 
  Country: None (occurrence: None)
  Receive Date: 20120521
  Receipt Date: 20120516
  Transmission Date: 20120825
  Serious: No
  Sender: FDA-Public Use
  Company Number: US-TEVA-338611USA

PATIENT
  Sex: Female

DRUGS (4)
  1. AZILECT [Suspect]
     Indication: PARKINSON'S DISEASE
     Dosage: .5 MILLIGRAM;
     Route: 048
     Dates: start: 20120411, end: 20120510
  2. OMEPRAZOLE [Concomitant]
     Indication: ABDOMINAL DISCOMFORT
     Dosage: 20 MILLIGRAM;
     Route: 048
  3. CELECOXIB [Concomitant]
     Indication: ARTHRALGIA
     Route: 048
  4. LEVOTHYROXINE SODIUM [Concomitant]
     Indication: HYPOTHYROIDISM
     Dosage: 150 MICROGRAM;
     Route: 048

REACTIONS (3)
  - STRESS [None]
  - DEPRESSION [None]
  - COGNITIVE DISORDER [None]
